FAERS Safety Report 7366562-X (Version None)
Quarter: 2011Q1

REPORT INFORMATION
  Report Type: 
  Country: None (occurrence: None)
  Receive Date: 20110311
  Receipt Date: 20110226
  Transmission Date: 20110831
  Serious: Yes (Hospitalization, Other)
  Sender: FDA-Public Use
  Company Number: 2011AP000371

PATIENT
  Age: 53 Year
  Sex: Male

DRUGS (4)
  1. HALOPERIDOL [Suspect]
     Dosage: 5 MG;HS
  2. LORAZEPAM [Concomitant]
  3. ATENOLOL [Concomitant]
  4. RISPERIDONE [Suspect]
     Dosage: 1 MG;HS
     Dates: start: 20090521

REACTIONS (3)
  - NEUROLEPTIC MALIGNANT SYNDROME [None]
  - RHABDOMYOLYSIS [None]
  - PNEUMONIA ASPIRATION [None]
